FAERS Safety Report 8824040 (Version 1)
Quarter: 2012Q4

REPORT INFORMATION
  Report Type: 
  Country: CA (occurrence: CA)
  Receive Date: 20121004
  Receipt Date: 20121004
  Transmission Date: 20130627
  Serious: Yes (Other)
  Sender: FDA-Public Use
  Company Number: CA-AMGEN-CANSP2012027911

PATIENT
  Age: 41 Year
  Sex: Female
  Weight: 113.38 kg

DRUGS (3)
  1. ENBREL [Suspect]
     Indication: RHEUMATOID ARTHRITIS
     Dosage: 50 mg, qwk
     Route: 058
     Dates: start: 200909, end: 20101224
  2. METHOTREXATE [Concomitant]
     Indication: RHEUMATOID ARTHRITIS
     Dosage: 25mg daily
     Route: 048
     Dates: start: 2008
  3. PREDNISONE [Concomitant]
     Indication: RHEUMATOID ARTHRITIS
     Dosage: 5 mg, daily
     Route: 048
     Dates: start: 1995

REACTIONS (3)
  - Sarcoidosis [Recovered/Resolved]
  - Malaise [Unknown]
  - Weight decreased [Unknown]
